FAERS Safety Report 11067355 (Version 2)
Quarter: 2015Q2

REPORT INFORMATION
  Report Type: Spontaneous
  Country: US (occurrence: US)
  Receive Date: 20150426
  Receipt Date: 20150428
  Transmission Date: 20150821
  Serious: Yes (Hospitalization, Other)
  Sender: FDA-Public Use
  Company Number: US-PFIZER INC-2015137545

PATIENT
  Age: 64 Year
  Sex: Female
  Weight: 64 kg

DRUGS (25)
  1. VITAMIN B12 [Concomitant]
     Active Substance: CYANOCOBALAMIN
     Dosage: 1000 MCG/ML FREQUENCY UNKNOWN
  2. LOMOTIL [Concomitant]
     Active Substance: ATROPINE SULFATE\DIPHENOXYLATE HYDROCHLORIDE
     Dosage: 2.5/0.025 MG PER TABLET 4 TIMES A DAY, AS NEEDED
  3. NEXIUM [Concomitant]
     Active Substance: ESOMEPRAZOLE MAGNESIUM
     Dosage: 40 MG, 2X/DAY
  4. GLUCAGON. [Concomitant]
     Active Substance: GLUCAGON
     Dosage: 1 MG, AS NEEDED
  5. PROVIGIL [Concomitant]
     Active Substance: MODAFINIL
     Indication: EYE DISORDER
  6. RANITIDINE [Concomitant]
     Active Substance: RANITIDINE\RANITIDINE HYDROCHLORIDE
     Dosage: 150 MG, DAILY
  7. CALTRATE [Concomitant]
     Active Substance: CALCIUM CARBONATE
     Dosage: 600 MG, 2X/DAY
  8. SERINE. [Concomitant]
     Active Substance: SERINE
     Dosage: UNK (0.65% 2 SPRAY), AS NEEDED
  9. EFFEXOR [Concomitant]
     Active Substance: VENLAFAXINE HYDROCHLORIDE
     Dosage: 75 MG, DAILY
  10. PROVIGIL [Concomitant]
     Active Substance: MODAFINIL
     Indication: VITAMIN SUPPLEMENTATION
     Dosage: 1 DF, DAILY
  11. RECLAST [Concomitant]
     Active Substance: ZOLEDRONIC ACID
     Dosage: UNK (5 MG /100 ML)
  12. DILAUDID [Concomitant]
     Active Substance: HYDROMORPHONE HYDROCHLORIDE
     Dosage: 2 MG, EVERY 3 HOURS AS NEEDED
  13. DOXYCYCLINE. [Concomitant]
     Active Substance: DOXYCYCLINE
     Dosage: 100 MG, 2X/DAY
  14. EPIPEN [Concomitant]
     Active Substance: EPINEPHRINE
     Dosage: 0.3 MG - 0.3 ML 1:1000 INJECTION
  15. CARAFATE [Concomitant]
     Active Substance: SUCRALFATE
     Dosage: UNK, AS NEEDED (100 MG/ML 10 MG 4 TIMES A DAY)
     Route: 048
  16. REVATIO [Suspect]
     Active Substance: SILDENAFIL CITRATE
     Indication: PULMONARY ARTERIAL HYPERTENSION
     Dosage: 40 MG, 3X/DAY
     Route: 048
  17. FENTANYL. [Concomitant]
     Active Substance: FENTANYL
     Dosage: 50 UG, PER HOUR 1 PATCH EVERY 72 HOURS
  18. LIDOCAINE. [Concomitant]
     Active Substance: LIDOCAINE
     Dosage: 2% SOLUTION 15 MG BY MOUTH EVERY 3 HOURS, AS NEEDED
     Route: 048
  19. MELATONIN [Concomitant]
     Active Substance: MELATONIN
     Dosage: 5 MG PER 15 ML,(AT BEDTIME) AS NEEDED
     Route: 048
  20. REVATIO [Suspect]
     Active Substance: SILDENAFIL CITRATE
     Indication: RAYNAUD^S PHENOMENON
  21. DEPAKOTE [Concomitant]
     Active Substance: DIVALPROEX SODIUM
     Dosage: 500 MG, 2X/DAY
  22. LUTEIN [Concomitant]
     Active Substance: LUTEIN
     Indication: SUPPLEMENTATION THERAPY
  23. AMLODIPINE [Concomitant]
     Active Substance: AMLODIPINE BESYLATE
     Dosage: 5 MG, DAILY
  24. VITAMIN D3 [Concomitant]
     Active Substance: CHOLECALCIFEROL
     Dosage: 2000 IU, DAILY
  25. PREDNISONE. [Concomitant]
     Active Substance: PREDNISONE
     Dosage: 6 MG, DAILY (1 MG AND 5 MG TAKES ONE TABLET DAILY OF EACH)

REACTIONS (5)
  - Cellulitis [Unknown]
  - Staphylococcal infection [Unknown]
  - Wound [Unknown]
  - Skin ulcer [Unknown]
  - Product use issue [Unknown]
